FAERS Safety Report 14267267 (Version 1)
Quarter: 2017Q4

REPORT INFORMATION
  Report Type: Spontaneous
  Country: US (occurrence: US)
  Receive Date: 20171208
  Receipt Date: 20171208
  Transmission Date: 20180321
  Serious: Yes (Other)
  Sender: FDA-Public Use
  Company Number: None

PATIENT
  Sex: Female
  Weight: 81 kg

DRUGS (5)
  1. PREDNISONE. [Concomitant]
     Active Substance: PREDNISONE
  2. TORADOL [Concomitant]
     Active Substance: KETOROLAC TROMETHAMINE
  3. OMNIPAQUE [Suspect]
     Active Substance: IOHEXOL
     Indication: SCAN WITH CONTRAST
     Dates: start: 20160607
  4. LOW DOSE NALTROXENE [Concomitant]
  5. DEXAMETHASONE. [Suspect]
     Active Substance: DEXAMETHASONE
     Indication: EPIDURAL INJECTION
     Dates: start: 20160607

REACTIONS (23)
  - Gait inability [None]
  - Sciatica [None]
  - Hypoaesthesia [None]
  - Headache [None]
  - Anorectal sensory loss [None]
  - Paraesthesia [None]
  - Peripheral swelling [None]
  - Arachnoiditis [None]
  - Sensory disturbance [None]
  - Flushing [None]
  - Visual impairment [None]
  - Gait disturbance [None]
  - Asthenia [None]
  - Nerve injury [None]
  - Feeling drunk [None]
  - Wrong technique in product usage process [None]
  - Malaise [None]
  - Muscle twitching [None]
  - Musculoskeletal disorder [None]
  - Dysstasia [None]
  - Vision blurred [None]
  - Sympathetic nerve injury [None]
  - Exercise tolerance decreased [None]

NARRATIVE: CASE EVENT DATE: 20160607
